FAERS Safety Report 14561741 (Version 2)
Quarter: 2018Q1

REPORT INFORMATION
  Report Type: Spontaneous
  Country: US (occurrence: US)
  Receive Date: 20180222
  Receipt Date: 20180319
  Transmission Date: 20180509
  Serious: Yes (Hospitalization, Other)
  Sender: FDA-Public Use
  Company Number: US-TEVA-2018-US-860518

PATIENT
  Age: 4 Year
  Sex: Male
  Weight: 17.2 kg

DRUGS (2)
  1. LIORESAL [Suspect]
     Active Substance: BACLOFEN
     Route: 037
     Dates: start: 20171229
  2. BACLOFEN. [Suspect]
     Active Substance: BACLOFEN
     Dosage: 15 MG/ DAY IN AM, 20 MG/DAY IN PM.
     Route: 048
     Dates: end: 201712

REACTIONS (5)
  - Tachycardia [Recovering/Resolving]
  - Drug withdrawal syndrome [Recovered/Resolved]
  - Musculoskeletal stiffness [Recovering/Resolving]
  - Agitation [Recovering/Resolving]
  - Hyperhidrosis [Recovering/Resolving]

NARRATIVE: CASE EVENT DATE: 201712
